FAERS Safety Report 25433726 (Version 1)
Quarter: 2025Q2

REPORT INFORMATION
  Report Type: Report from Study
  Country: US (occurrence: US)
  Receive Date: 20250613
  Receipt Date: 20250613
  Transmission Date: 20250717
  Serious: Yes (Hospitalization)
  Sender: BIOVITRUM
  Company Number: US-BIOVITRUM-2025-US-005967

PATIENT
  Age: 29 Year
  Sex: Male

DRUGS (1)
  1. KINERET [Suspect]
     Active Substance: ANAKINRA
     Indication: Juvenile idiopathic arthritis
     Route: 058
     Dates: start: 202206

REACTIONS (4)
  - Swelling face [Unknown]
  - Pain [Unknown]
  - Rash [Unknown]
  - Generalised oedema [Unknown]
